FAERS Safety Report 19131793 (Version 3)
Quarter: 2025Q1

REPORT INFORMATION
  Report Type: Spontaneous
  Country: US (occurrence: US)
  Receive Date: 20210414
  Receipt Date: 20250203
  Transmission Date: 20250409
  Serious: Yes (Other)
  Sender: NOVO NORDISK
  Company Number: US-NOVOPROD-801226

PATIENT
  Age: 68 Year
  Sex: Male
  Weight: 103.4 kg

DRUGS (1)
  1. NOVOLIN R [Suspect]
     Active Substance: INSULIN HUMAN
     Indication: Type 2 diabetes mellitus
     Dosage: 100 IU, BID + SLIDING SCALE
     Route: 058
     Dates: start: 2013

REACTIONS (3)
  - Pancreatic failure [Not Recovered/Not Resolved]
  - Back pain [Unknown]
  - Hyperglycaemia [Not Recovered/Not Resolved]
